FAERS Safety Report 8815781 (Version 2)
Quarter: 2013Q1

REPORT INFORMATION
  Report Type: Other
  Country: US (occurrence: US)
  Receive Date: 20120928
  Receipt Date: 20130301
  Transmission Date: 20140127
  Serious: Yes (Hospitalization, Disabling, Other)
  Sender: FDA-Public Use
  Company Number: US-NAPPMUNDI-GBR-2012-0011472

PATIENT
  Age: 70 Year
  Sex: Female

DRUGS (3)
  1. HYDROMORPHONE HCL INJECTABLE [Suspect]
     Indication: BACK PAIN
     Dosage: 24 MG/100MG/ML, DAILY
     Route: 037
     Dates: start: 200705
  2. HYDROMORPHONE HCL INJECTABLE [Suspect]
     Indication: PAIN IN EXTREMITY
     Dosage: 19 MG 50MG/ML, DAILY
     Route: 037
  3. HYDROMORPHONE HCL INJECTABLE [Suspect]
     Dosage: 2.8 MG/20MG/ML, DAILY
     Route: 037
     Dates: start: 200501

REACTIONS (2)
  - Injection site granuloma [Recovered/Resolved]
  - Paraplegia [Not Recovered/Not Resolved]
